FAERS Safety Report 15352249 (Version 2)
Quarter: 2018Q3

REPORT INFORMATION
  Report Type: Report from Study
  Country: IT (occurrence: IT)
  Receive Date: 20180905
  Receipt Date: 20180906
  Transmission Date: 20181010
  Serious: Yes (Hospitalization, Other)
  Sender: FDA-Public Use
  Company Number: IT-BRISTOL-MYERS SQUIBB COMPANY-BMS-2018-081202

PATIENT
  Age: 76 Year
  Sex: Female
  Weight: 64 kg

DRUGS (8)
  1. CARDIOASPIRINA [Concomitant]
     Active Substance: ASPIRIN
     Indication: PROPHYLAXIS
     Dosage: 100 MG, DAILY
     Route: 048
  2. GEMCITABINE [Concomitant]
     Active Substance: GEMCITABINE\GEMCITABINE HYDROCHLORIDE
     Indication: NEOPLASM MALIGNANT
     Dosage: 1500 MG, UNK
     Route: 042
     Dates: start: 20180213
  3. CONCOR [Concomitant]
     Active Substance: BISOPROLOL FUMARATE
     Indication: PROPHYLAXIS
     Dosage: 10 MG, DAILY
     Route: 048
  4. APIXABAN [Suspect]
     Active Substance: APIXABAN
     Indication: PULMONARY EMBOLISM
     Route: 065
  5. METFORMINE                         /00082701/ [Concomitant]
     Active Substance: METFORMIN HYDROCHLORIDE
     Indication: PROPHYLAXIS
     Dosage: 1000 MG, BID
     Route: 048
  6. MODURETIC 5?50 [Concomitant]
     Active Substance: AMILORIDE HYDROCHLORIDE\HYDROCHLOROTHIAZIDE
     Indication: PROPHYLAXIS
     Dosage: 5 MG, UNK
     Route: 048
  7. APIXABAN [Suspect]
     Active Substance: APIXABAN
     Indication: DEEP VEIN THROMBOSIS
     Dosage: 10 MG, DAILY
     Route: 048
     Dates: start: 20180307, end: 20180613
  8. OXALIPLATIN. [Concomitant]
     Active Substance: OXALIPLATIN
     Indication: NEOPLASM MALIGNANT
     Dosage: 120 MG, UNK
     Route: 042
     Dates: start: 20180214

REACTIONS (3)
  - Muscular weakness [Recovered/Resolved]
  - Vaginal haemorrhage [Recovered/Resolved]
  - Ischaemic stroke [Recovered/Resolved]

NARRATIVE: CASE EVENT DATE: 20180603
